FAERS Safety Report 17980360 (Version 4)
Quarter: 2022Q2

REPORT INFORMATION
  Report Type: Spontaneous
  Country: BR (occurrence: BR)
  Receive Date: 20200703
  Receipt Date: 20220602
  Transmission Date: 20220720
  Serious: Yes (Death, Other)
  Sender: FDA-Public Use
  Company Number: BR-AMGEN-BRASP2020103480

PATIENT
  Age: 25 Year
  Sex: Female
  Weight: 41 kg

DRUGS (4)
  1. BLINCYTO [Suspect]
     Active Substance: BLINATUMOMAB
     Indication: B precursor type acute leukaemia
     Dosage: UNK
     Route: 065
  2. BLINCYTO [Suspect]
     Active Substance: BLINATUMOMAB
     Dosage: 15 MICROGRAM
     Route: 065
     Dates: start: 20200624
  3. BLINCYTO [Suspect]
     Active Substance: BLINATUMOMAB
     Dosage: 5 MICROGRAM/SQ. METER, QD
     Route: 065
     Dates: start: 20200711, end: 202007
  4. BLINCYTO [Suspect]
     Active Substance: BLINATUMOMAB
     Dosage: UNK
     Route: 065
     Dates: start: 2020, end: 2020

REACTIONS (8)
  - Acute lymphocytic leukaemia recurrent [Fatal]
  - Cardio-respiratory arrest [Unknown]
  - Hepatotoxicity [Recovered/Resolved]
  - Coma [Unknown]
  - Neutropenia [Unknown]
  - Herpes zoster [Unknown]
  - Headache [Unknown]
  - Fungal infection [Unknown]

NARRATIVE: CASE EVENT DATE: 20200625
